FAERS Safety Report 5860081-5 (Version None)
Quarter: 2008Q3

REPORT INFORMATION
  Report Type: 
  Country: None (occurrence: None)
  Receive Date: 20080827
  Receipt Date: 20080819
  Transmission Date: 20090109
  Serious: Yes (Other)
  Sender: FDA-Public Use
  Company Number: US-PFIZER INC-2008063468

PATIENT

DRUGS (1)
  1. TIKOSYN [Suspect]

REACTIONS (1)
  - KNEE ARTHROPLASTY [None]
